FAERS Safety Report 8417325 (Version 3)
Quarter: 2013Q3

REPORT INFORMATION
  Report Type: Spontaneous
  Country: US (occurrence: US)
  Receive Date: 20120220
  Receipt Date: 20130903
  Transmission Date: 20140515
  Serious: Yes (Hospitalization, Other)
  Sender: FDA-Public Use
  Company Number: US-ROCHE-1040341

PATIENT
  Sex: Female
  Weight: 44.04 kg

DRUGS (1)
  1. ACCUTANE [Suspect]
     Indication: ACNE
     Route: 065
     Dates: start: 1984, end: 1986

REACTIONS (3)
  - Crohn^s disease [Unknown]
  - Depression [Unknown]
  - Injury [Unknown]
